FAERS Safety Report 6209674-6 (Version None)
Quarter: 2009Q2

REPORT INFORMATION
  Report Type: 
  Country: None (occurrence: None)
  Receive Date: 20090601
  Receipt Date: 20090521
  Transmission Date: 20091009
  Serious: Yes (Other)
  Sender: FDA-Public Use
  Company Number: RO-AMGEN-QUU348202

PATIENT
  Sex: Female

DRUGS (5)
  1. NEULASTA [Suspect]
     Indication: CHEMOTHERAPY
     Route: 058
     Dates: start: 20090501
  2. ENDOXAN [Concomitant]
     Route: 042
  3. FARMORUBICIN [Concomitant]
     Route: 042
  4. GRANISETRON HCL [Concomitant]
     Route: 042
  5. METOCLOPRAMIDE [Concomitant]
     Route: 042

REACTIONS (1)
  - PYREXIA [None]
